FAERS Safety Report 19204076 (Version 1)
Quarter: 2021Q2

REPORT INFORMATION
  Report Type: Spontaneous
  Country: PL (occurrence: PL)
  Receive Date: 20210503
  Receipt Date: 20210503
  Transmission Date: 20210717
  Serious: Yes (Other)
  Sender: FDA-Public Use
  Company Number: PL-SUN PHARMACEUTICAL INDUSTRIES LTD-2021RR-293843

PATIENT
  Age: 20 Year
  Sex: Male

DRUGS (5)
  1. PREGABALIN. [Suspect]
     Active Substance: PREGABALIN
     Indication: NEUROLEPTIC MALIGNANT SYNDROME
     Dosage: 1500 MILLIGRAM, UNK
     Route: 065
  2. MELPERONE [Suspect]
     Active Substance: MELPERONE
     Indication: NEUROLEPTIC MALIGNANT SYNDROME
     Dosage: 2500 MILLIGRAM, UNK
     Route: 065
  3. ZOPICLONE [Suspect]
     Active Substance: ZOPICLONE
     Indication: NEUROLEPTIC MALIGNANT SYNDROME
     Dosage: 225 MILLIGRAM, UNK
     Route: 065
  4. TAMOXIFEN [Suspect]
     Active Substance: TAMOXIFEN
     Indication: NEUROLEPTIC MALIGNANT SYNDROME
     Dosage: 400 MILLIGRAM, UNK
     Route: 065
  5. IBUPROFEN. [Suspect]
     Active Substance: IBUPROFEN
     Indication: NEUROLEPTIC MALIGNANT SYNDROME
     Dosage: 2000 MILLIGRAM, UNK
     Route: 065

REACTIONS (1)
  - Rhabdomyolysis [Unknown]
